FAERS Safety Report 10235203 (Version 1)
Quarter: 2014Q1

REPORT INFORMATION
  Report Type: Spontaneous
  Country: US (occurrence: None)
  Receive Date: 20140306
  Receipt Date: 20140306
  Transmission Date: 20141002
  Serious: Yes (Hospitalization)
  Sender: FDA-Public Use
  Company Number: 163-21880-13092985

PATIENT
  Age: 69 Year
  Sex: Male

DRUGS (10)
  1. REVLIMID (LENALIDOMIDE) (5 MILLIGRAM, CAPSULES) [Suspect]
     Indication: DIFFUSE LARGE B-CELL LYMPHOMA
     Route: 048
     Dates: start: 201308, end: 2013
  2. REVLIMID (LENALIDOMIDE) (5 MILLIGRAM, CAPSULES) [Suspect]
     Indication: DIFFUSE LARGE B-CELL LYMPHOMA
     Route: 048
     Dates: start: 201308, end: 2013
  3. LYRICA (PREGABALIN) [Concomitant]
  4. VITAMIN B12 (CYANOCOBALAMIN) [Concomitant]
  5. VITAMIN B6 (PYRIDOXINE HYDROCHLORIDE) [Concomitant]
  6. LIDOCAINE (LIDOCAINE) [Concomitant]
  7. MV (MULTIVITAMIN) (MULTIVITAMINS) [Concomitant]
  8. OMEPRAZOLE (OMEPRAZOLE) [Concomitant]
  9. CARAFATE (SUCRALFATE) TABLET, 1G [Concomitant]
  10. PANCRELIPASE (PANCRELIPASE) [Concomitant]

REACTIONS (1)
  - Pancytopenia [None]
